FAERS Safety Report 5081563-2 (Version None)
Quarter: 2006Q3

REPORT INFORMATION
  Report Type: 
  Country: None (occurrence: None)
  Receive Date: 20060811
  Receipt Date: 20060801
  Transmission Date: 20061208
  Serious: Yes (Hospitalization)
  Sender: FDA-Public Use
  Company Number: 234885K06USA

PATIENT
  Age: 58 Year
  Sex: Female

DRUGS (7)
  1. REBIF [Suspect]
     Indication: MULTIPLE SCLEROSIS
     Dosage: 44 MCG, 3 IN 1 WEEKS, SUBCUTANEOUS
     Route: 058
     Dates: start: 20040224
  2. NEURONTIN [Concomitant]
  3. DARVOCET [Concomitant]
  4. LORAZEPAM [Concomitant]
  5. BACLOFEN [Concomitant]
  6. HYZAAR [Concomitant]
  7. VICODIN [Concomitant]

REACTIONS (9)
  - CONDITION AGGRAVATED [None]
  - DEHYDRATION [None]
  - DYSPNOEA [None]
  - HEADACHE [None]
  - INJECTION SITE BRUISING [None]
  - INJECTION SITE REACTION [None]
  - MULTIPLE SCLEROSIS [None]
  - SINUSITIS [None]
  - VISUAL DISTURBANCE [None]
